FAERS Safety Report 9876041 (Version 2)
Quarter: 2014Q1

REPORT INFORMATION
  Report Type: Other
  Country: US (occurrence: US)
  Receive Date: 20140206
  Receipt Date: 20140206
  Transmission Date: 20141002
  Serious: No
  Sender: FDA-Public Use
  Company Number: US-ACORDA-ACO_36430_2013

PATIENT
  Age: 62 Year
  Sex: Female
  Weight: 54.88 kg

DRUGS (2)
  1. AMPYRA [Suspect]
     Indication: GAIT DISTURBANCE
     Dosage: 10 MG, Q 12 HRS
     Route: 048
     Dates: start: 201304, end: 201304
  2. MIRAPEX [Concomitant]
     Indication: PRODUCT USED FOR UNKNOWN INDICATION
     Dosage: 0.75 MG, UNK
     Dates: start: 201205

REACTIONS (6)
  - Abnormal dreams [Recovered/Resolved]
  - Cystitis [Recovered/Resolved]
  - Fall [Recovered/Resolved]
  - Therapeutic response unexpected [Recovered/Resolved]
  - Urinary tract infection [Recovered/Resolved]
  - Balance disorder [Recovered/Resolved]
